FAERS Safety Report 5530281-2 (Version None)
Quarter: 2007Q4

REPORT INFORMATION
  Report Type: 
  Country: None (occurrence: None)
  Receive Date: 20071127
  Receipt Date: 20071127
  Transmission Date: 20080405
  Serious: Yes (Life-Threatening, Hospitalization)
  Sender: FDA-Public Use
  Company Number: None

PATIENT
  Age: 4 Day
  Sex: Female
  Weight: 0.79 kg

DRUGS (3)
  1. NEOPROFEN [Suspect]
     Indication: PATENT DUCTUS ARTERIOSUS
     Dosage: 8.57 MG DAILY IV; 3.8 MG DAILY IV
     Route: 042
     Dates: start: 20071107, end: 20071108
  2. GENTAMICIN [Concomitant]
  3. AMPICILLIN [Concomitant]

REACTIONS (2)
  - INTESTINAL PERFORATION [None]
  - SEPSIS [None]
